FAERS Safety Report 9501350 (Version 2)
Quarter: 2013Q3

REPORT INFORMATION
  Report Type: Spontaneous
  Country: GR (occurrence: GR)
  Receive Date: 20130905
  Receipt Date: 20130923
  Transmission Date: 20140515
  Serious: Yes (Death)
  Sender: FDA-Public Use
  Company Number: GR-GLAXOSMITHKLINE-B0904072A

PATIENT
  Age: 73 Year
  Sex: Female

DRUGS (1)
  1. ARZERRA [Suspect]
     Indication: CHRONIC LYMPHOCYTIC LEUKAEMIA
     Route: 065

REACTIONS (5)
  - Respiratory tract infection [Fatal]
  - Pseudomonas infection [Fatal]
  - Pneumonia [Fatal]
  - Off label use [Unknown]
  - Pyrexia [Unknown]
